FAERS Safety Report 12979028 (Version 1)
Quarter: 2016Q4

REPORT INFORMATION
  Report Type: Spontaneous
  Country: DE (occurrence: DE)
  Receive Date: 20161128
  Receipt Date: 20161128
  Transmission Date: 20170207
  Serious: Yes (Other)
  Sender: FDA-Public Use
  Company Number: DE-MYLANLABS-2016M1050750

PATIENT

DRUGS (1)
  1. FENTANYL. [Suspect]
     Active Substance: FENTANYL
     Indication: NEURALGIA
     Dosage: HIGHLY DOSED FENTANYL PATCH
     Route: 065

REACTIONS (2)
  - Gastrointestinal pain [Recovered/Resolved]
  - Hydronephrosis [Recovered/Resolved]
